FAERS Safety Report 7364881-4 (Version None)
Quarter: 2011Q1

REPORT INFORMATION
  Report Type: 
  Country: None (occurrence: None)
  Receive Date: 20110316
  Receipt Date: 20110316
  Transmission Date: 20110831
  Serious: Yes (Other)
  Sender: FDA-Public Use
  Company Number: None

PATIENT
  Age: 32 Year
  Sex: Female
  Weight: 80.9 kg

DRUGS (2)
  1. ACETAZOLAMIDE 250MG TAB [Suspect]
     Indication: INTRACRANIAL PRESSURE INCREASED
     Dosage: ACETAZOLAMIDE 500MG BID + 250MG QA ORAL
     Route: 048
     Dates: start: 20101230
  2. ACETAZOLAMIDE 250MG TAB [Suspect]
     Indication: INTRACRANIAL PRESSURE INCREASED
     Dosage: ACETAZOLAMIDE 500MG BID + 250MG QA ORAL
     Route: 048
     Dates: start: 20110201

REACTIONS (1)
  - NEUTROPHIL COUNT DECREASED [None]
